FAERS Safety Report 5329456-7 (Version None)
Quarter: 2007Q2

REPORT INFORMATION
  Report Type: 
  Country: None (occurrence: None)
  Receive Date: 20070221
  Receipt Date: 20060502
  Transmission Date: 20071010
  Serious: Yes (Other)
  Sender: FDA-Public Use
  Company Number: US-2006-010397

PATIENT
  Age: 65 Year
  Sex: Female
  Weight: 84 kg

DRUGS (13)
  1. CLIMARA [Suspect]
     Indication: ARTIFICIAL MENOPAUSE
     Dosage: 0.05 MG/D, CONT, TRANSDERMAL
     Route: 062
     Dates: start: 19980501, end: 19980501
  2. VIVELLE [Suspect]
     Dosage: 0.05 MG, 2X/DAY, TRANSDERMAL
     Route: 062
     Dates: start: 19980708, end: 19980101
  3. PREMARIN [Suspect]
     Dosage: .0625 MG, 1X/DAY, ORAL
     Route: 048
     Dates: start: 19990107, end: 20000101
  4. PREMPRO [Suspect]
     Dates: start: 20000101, end: 20000101
  5. ESTRACE [Suspect]
     Dates: start: 20000101, end: 20000101
  6. ESTRADERM [Suspect]
     Dates: start: 19980501, end: 19980701
  7. NORVASC [Concomitant]
  8. DIOVAN [Concomitant]
  9. HYDROCHLOROTHIAZIDE [Concomitant]
  10. CELEBREX [Concomitant]
  11. PRILOSEC [Concomitant]
  12. CETIRIZINE HCL [Concomitant]
  13. LORAZEPAM [Concomitant]

REACTIONS (3)
  - BREAST CANCER FEMALE [None]
  - DEPRESSION [None]
  - IRRITABLE BOWEL SYNDROME [None]
